FAERS Safety Report 9483862 (Version 2)
Quarter: 2013Q3

REPORT INFORMATION
  Report Type: Spontaneous
  Country: FR (occurrence: FR)
  Receive Date: 20130828
  Receipt Date: 20130910
  Transmission Date: 20140515
  Serious: Yes (Hospitalization)
  Sender: FDA-Public Use
  Company Number: PHHY2013FR093516

PATIENT
  Age: 18 Month
  Sex: Male

DRUGS (5)
  1. TEGRETOL [Suspect]
     Indication: TONIC CONVULSION
     Dosage: 50 MG, QD
     Route: 048
     Dates: start: 20130730
  2. TEGRETOL [Suspect]
     Dosage: 50 MG, BID
     Route: 048
  3. TEGRETOL [Suspect]
     Dosage: 80 MG, BID
     Route: 048
     Dates: end: 20130821
  4. URBANYL [Suspect]
     Dosage: 10 MG, UNK
     Dates: start: 20130730, end: 20130819
  5. VALIUM [Concomitant]
     Indication: CONVULSION
     Dosage: UNK UKN, UNK
     Route: 054
     Dates: start: 20130725, end: 20130725

REACTIONS (2)
  - Ataxia [Not Recovered/Not Resolved]
  - Abasia [Unknown]
